FAERS Safety Report 8906179 (Version 2)
Quarter: 2012Q4

REPORT INFORMATION
  Report Type: Spontaneous
  Country: DK (occurrence: None)
  Receive Date: 20121109
  Receipt Date: 20121113
  Transmission Date: 20130627
  Serious: Yes (Hospitalization, Other)
  Sender: FDA-Public Use
  Company Number: AUR-APL-2012-04807

PATIENT
  Age: 31 Year
  Sex: Female
  Weight: 150 kg

DRUGS (6)
  1. METFORMIN [Suspect]
     Indication: TYPE 2 DIABETES MELLITUS
     Route: 048
     Dates: start: 20090709, end: 20100126
  2. RAMIPRIL [Suspect]
     Indication: HYPERTENSION
     Route: 048
     Dates: start: 20090709, end: 20100126
  3. METOPROLOL [Concomitant]
  4. DOPEGYT [Concomitant]
  5. NOVORAPID [Concomitant]
  6. PROTAPHANE [Concomitant]

REACTIONS (9)
  - Maternal exposure during pregnancy [None]
  - Gestational diabetes [None]
  - Glycosylated haemoglobin increased [None]
  - Transaminases increased [None]
  - Platelet count decreased [None]
  - Caesarean section [None]
  - Premature delivery [None]
  - HELLP syndrome [None]
  - Gestational hypertension [None]
